FAERS Safety Report 9609783 (Version 1)
Quarter: 2013Q4

REPORT INFORMATION
  Report Type: Spontaneous
  Country: US (occurrence: US)
  Receive Date: 20131009
  Receipt Date: 20131009
  Transmission Date: 20140711
  Serious: No
  Sender: FDA-Public Use
  Company Number: US-PURDUE-USA-2012-0095704

PATIENT
  Age: 34 Year
  Sex: Female

DRUGS (1)
  1. BUTRANS [Suspect]
     Indication: PROCEDURAL PAIN
     Dosage: 5 MCG, WEEKLY
     Route: 062
     Dates: start: 201210

REACTIONS (3)
  - Breakthrough pain [Not Recovered/Not Resolved]
  - Inadequate analgesia [Not Recovered/Not Resolved]
  - Product adhesion issue [Unknown]
